FAERS Safety Report 11143231 (Version 1)
Quarter: 2015Q2

REPORT INFORMATION
  Report Type: Spontaneous
  Country: US (occurrence: US)
  Receive Date: 20150526
  Receipt Date: 20150526
  Transmission Date: 20150821
  Serious: No
  Sender: FDA-Public Use
  Company Number: US-NOVEN PHARMACEUTICALS, INC.-US2015000100

PATIENT
  Sex: Female

DRUGS (1)
  1. MINIVELLE [Suspect]
     Active Substance: ESTRADIOL
     Indication: HOT FLUSH
     Dosage: UNK, INITIALLY THE DOSE WAS INCREASED AND LATER DRUG WAS WITHDRAWN
     Route: 062
     Dates: end: 201503

REACTIONS (3)
  - Drug prescribing error [Unknown]
  - Chest pain [Unknown]
  - Vaginal haemorrhage [Unknown]
